FAERS Safety Report 5703655 (Version 3)
Quarter: 2014Q2

REPORT INFORMATION
  Report Type: Spontaneous
  Country: GB (occurrence: GB)
  Receive Date: 20041228
  Receipt Date: 20140609
  Transmission Date: 20141212
  Serious: Yes (Death)
  Sender: FDA-Public Use
  Company Number: GB-JNJFOC-20041204543

PATIENT
  Age: 44 Year
  Sex: Male
  Weight: 70.1 kg

DRUGS (4)
  1. REMICADE [Suspect]
     Indication: CROHN^S DISEASE
     Route: 042
     Dates: start: 20040910, end: 20041007
  2. ASACOL [Concomitant]
     Indication: CROHN^S DISEASE
     Route: 048
  3. AZATHIOPRINE [Concomitant]
     Indication: CROHN^S DISEASE
     Route: 048
  4. PREDNISOLONE [Concomitant]
     Indication: CROHN^S DISEASE
     Dosage: 10 - 20MG OD
     Route: 048

REACTIONS (1)
  - Disseminated tuberculosis [Fatal]
